FAERS Safety Report 8585621-7 (Version None)
Quarter: 2012Q3

REPORT INFORMATION
  Report Type: 
  Country: None (occurrence: None)
  Receive Date: 20120810
  Receipt Date: 20120805
  Transmission Date: 20120928
  Serious: Yes (Other)
  Sender: FDA-Public Use
  Company Number: PHHY2012MX068790

PATIENT
  Sex: Male

DRUGS (5)
  1. EXELON [Suspect]
     Indication: DEMENTIA ALZHEIMER'S TYPE
     Dosage: 1 PATCH (10CM2/9.5 MG) DAILY
     Route: 062
  2. GAMADOL [Concomitant]
     Dosage: 2 TABLET DAILY
  3. CLONAZEPAM [Concomitant]
     Dosage: 10 DRP AT NIGHT
  4. LASERTRALINE [Concomitant]
     Dosage: 1 TABLET DAILY
  5. RISPERDAL [Concomitant]
     Dosage: 1 TABLET DAILY

REACTIONS (3)
  - BONE NEOPLASM [None]
  - CONDITION AGGRAVATED [None]
  - SENILE DEMENTIA [None]
